FAERS Safety Report 9304246 (Version 1)
Quarter: 2013Q2

REPORT INFORMATION
  Report Type: Spontaneous
  Country: US (occurrence: US)
  Receive Date: 20130522
  Receipt Date: 20130522
  Transmission Date: 20140414
  Serious: Yes (Hospitalization)
  Sender: FDA-Public Use
  Company Number: US-ROXANE LABORATORIES, INC.-2013-RO-00821RO

PATIENT
  Age: 49 Year
  Sex: Female

DRUGS (3)
  1. CALCIUM CARBONATE [Suspect]
     Indication: HYPOCALCAEMIA
  2. VITAMIN D [Suspect]
     Indication: HYPOCALCAEMIA
  3. POTASSIUM PHOSPHATE [Suspect]
     Indication: HYPOPHOSPHATAEMIA

REACTIONS (1)
  - Nephrocalcinosis [Recovered/Resolved]
